FAERS Safety Report 7647895-6 (Version None)
Quarter: 2011Q3

REPORT INFORMATION
  Report Type: 
  Country: None (occurrence: None)
  Receive Date: 20110801
  Receipt Date: 20110603
  Transmission Date: 20111222
  Serious: No
  Sender: FDA-Public Use
  Company Number: US-ABBOTT-11P-163-0804553-00

PATIENT
  Sex: Male
  Weight: 79.545 kg

DRUGS (1)
  1. PANCREATIN TRIPLE STRENGTH CAP [Suspect]
     Indication: PANCREATIC ENZYMES ABNORMAL
     Dosage: DAILY DOSE:  UNKNOWN, AS USED: 24000 UNITS, 3 CAPS BEFORE EACH MEAL, 2 CAPS BEFORE EACH SNACK
     Route: 065
     Dates: start: 20110201, end: 20110214

REACTIONS (2)
  - ABDOMINAL PAIN UPPER [None]
  - FLATULENCE [None]
